FAERS Safety Report 22124499 (Version 1)
Quarter: 2023Q1

REPORT INFORMATION
  Report Type: Spontaneous
  Country: US (occurrence: US)
  Receive Date: 20230322
  Receipt Date: 20230322
  Transmission Date: 20230417
  Serious: Yes (Hospitalization, Other)
  Sender: FDA-Public Use
  Company Number: US-ADVANZ PHARMA-202303002028

PATIENT

DRUGS (1)
  1. DIGOXIN [Suspect]
     Active Substance: DIGOXIN
     Indication: Abortion induced
     Dosage: 2 MG, INJECTION
     Route: 012

REACTIONS (11)
  - Hypertension [Recovering/Resolving]
  - Hyponatraemia [Recovering/Resolving]
  - Chromatopsia [Recovering/Resolving]
  - Hypokalaemia [Recovering/Resolving]
  - Nodal rhythm [Recovering/Resolving]
  - Bradycardia [Recovering/Resolving]
  - Nausea [Recovering/Resolving]
  - Vomiting [Recovering/Resolving]
  - Abdominal pain [Recovering/Resolving]
  - Toxicity to various agents [Recovering/Resolving]
  - Product use in unapproved indication [Unknown]
